FAERS Safety Report 15591978 (Version 1)
Quarter: 2018Q4

REPORT INFORMATION
  Report Type: Spontaneous
  Country: US (occurrence: US)
  Receive Date: 20181107
  Receipt Date: 20181107
  Transmission Date: 20190205
  Serious: No
  Sender: FDA-Public Use
  Company Number: US-B.I. PHARMACEUTICALS,INC./RIDGEFIELD-2018-BI-054298

PATIENT
  Age: 7 Year
  Sex: Male

DRUGS (2)
  1. DEXAMPHETAMINE-AMPHETAMINE [Concomitant]
     Indication: ATTENTION DEFICIT/HYPERACTIVITY DISORDER
     Route: 065
  2. CLONIDINE. [Suspect]
     Active Substance: CLONIDINE
     Indication: ATTENTION DEFICIT/HYPERACTIVITY DISORDER
     Route: 065

REACTIONS (1)
  - Somnambulism [Recovered/Resolved]
